FAERS Safety Report 6543094-X (Version None)
Quarter: 2010Q1

REPORT INFORMATION
  Report Type: 
  Country: None (occurrence: None)
  Receive Date: 20100120
  Receipt Date: 20100108
  Transmission Date: 20100710
  Serious: Yes (Other)
  Sender: FDA-Public Use
  Company Number: PHHY2009GB50045

PATIENT
  Sex: Female

DRUGS (4)
  1. CLOZARIL [Suspect]
     Indication: SCHIZOPHRENIA
     Dosage: UNK
     Dates: start: 20090626
  2. DIAZEPAM [Concomitant]
  3. QUETIAPINE [Concomitant]
  4. ZOPICLONE [Concomitant]

REACTIONS (6)
  - APNOEA [None]
  - DYSPNOEA [None]
  - HYPERPARATHYROIDISM [None]
  - INFLUENZA LIKE ILLNESS [None]
  - MENTAL DISORDER [None]
  - WHITE BLOOD CELL COUNT DECREASED [None]
